FAERS Safety Report 5719729-8 (Version None)
Quarter: 2008Q2

REPORT INFORMATION
  Report Type: 
  Country: None (occurrence: None)
  Receive Date: 20080428
  Receipt Date: 20080422
  Transmission Date: 20081010
  Serious: Yes (Life-Threatening, Hospitalization)
  Sender: FDA-Public Use
  Company Number: US-BRISTOL-MYERS SQUIBB COMPANY-14090534

PATIENT
  Age: 68 Year
  Sex: Male
  Weight: 79 kg

DRUGS (3)
  1. ERBITUX [Suspect]
     Indication: OESOPHAGEAL ADENOCARCINOMA
     Dosage: WITHDRAWN ON 13MAR08
     Route: 042
     Dates: start: 20080122, end: 20080129
  2. ELOXATIN [Suspect]
     Indication: OESOPHAGEAL ADENOCARCINOMA
     Dosage: WITHDRAWN ON 13MAR08
     Route: 042
     Dates: start: 20080122, end: 20080212
  3. TAXOTERE [Suspect]
     Indication: OESOPHAGEAL ADENOCARCINOMA
     Dosage: WITHDRAWN ON 13MAR08
     Route: 042
     Dates: start: 20080122, end: 20080212

REACTIONS (2)
  - GASTRIC PERFORATION [None]
  - PLEURAL EFFUSION [None]
